FAERS Safety Report 20584372 (Version 2)
Quarter: 2023Q1

REPORT INFORMATION
  Report Type: Report from Study
  Country: KR (occurrence: KR)
  Receive Date: 20220311
  Receipt Date: 20230106
  Transmission Date: 20230418
  Serious: Yes (Death, Hospitalization)
  Sender: FDA-Public Use
  Company Number: KR-JNJFOC-20210346285

PATIENT
  Age: 79 Year
  Sex: Female
  Weight: 43.5 kg

DRUGS (21)
  1. AMIVANTAMAB [Suspect]
     Active Substance: AMIVANTAMAB
     Indication: Non-small cell lung cancer
     Route: 042
     Dates: start: 20201228, end: 20201228
  2. AMIVANTAMAB [Suspect]
     Active Substance: AMIVANTAMAB
     Route: 042
     Dates: start: 20201229, end: 20201229
  3. AMIVANTAMAB [Suspect]
     Active Substance: AMIVANTAMAB
     Dosage: ALSO REPORTED AS 250 ML
     Route: 042
     Dates: start: 20210104, end: 20210209
  4. DESOWEN [Concomitant]
     Active Substance: DESONIDE
     Indication: Prophylaxis
     Route: 061
     Dates: start: 20201228
  5. CLINDAMYCIN HYDROCHLORIDE [Concomitant]
     Active Substance: CLINDAMYCIN HYDROCHLORIDE
     Indication: Prophylaxis
     Route: 061
     Dates: start: 20201228, end: 20210321
  6. ALOFEN [Concomitant]
     Indication: Pelvic pain
     Route: 048
     Dates: start: 20210104, end: 20210305
  7. TANTUM [BENZYDAMINE HYDROCHLORIDE] [Concomitant]
     Indication: Mucosal inflammation
     Route: 050
     Dates: start: 20210119, end: 20210321
  8. MEGACE [Concomitant]
     Active Substance: MEGESTROL ACETATE
     Indication: Decreased appetite
     Route: 048
     Dates: start: 20210126
  9. MINOCIN [Concomitant]
     Active Substance: MINOCYCLINE HYDROCHLORIDE
     Indication: Prophylaxis
     Route: 048
     Dates: start: 20210128, end: 20210321
  10. APIXABAN [Concomitant]
     Active Substance: APIXABAN
     Indication: Prophylaxis
     Route: 048
     Dates: start: 20210126, end: 20210405
  11. APIXABAN [Concomitant]
     Active Substance: APIXABAN
     Indication: Coronary artery disease
  12. CEBETABS [Concomitant]
     Indication: Prophylaxis
     Route: 048
  13. ALPHAGEN [BRIMONIDINE TARTRATE] [Concomitant]
     Indication: Glaucoma
     Route: 047
  14. METHYLPREDNISOLONE [Concomitant]
     Active Substance: METHYLPREDNISOLONE
     Indication: Paronychia
     Route: 061
     Dates: start: 20210305, end: 20210311
  15. METHYLPREDNISOLONE [Concomitant]
     Active Substance: METHYLPREDNISOLONE
     Indication: Paronychia
     Route: 061
     Dates: start: 20210312, end: 20210321
  16. MUPIROCIN [Concomitant]
     Active Substance: MUPIROCIN
     Indication: Paronychia
     Route: 061
     Dates: start: 20210305, end: 20210311
  17. EASYEF [Concomitant]
     Indication: Paronychia
     Route: 061
     Dates: start: 20210305, end: 20210311
  18. DURICEF [Concomitant]
     Active Substance: CEFADROXIL
     Indication: Paronychia
     Route: 048
     Dates: start: 20210305, end: 20210312
  19. FORUS [Concomitant]
     Indication: Prophylaxis
     Route: 061
     Dates: start: 20210305, end: 20210321
  20. BISOPROLOL [Concomitant]
     Active Substance: BISOPROLOL
     Indication: Pulmonary hypertension
     Route: 048
  21. PROPACETAMOL HYDROCHLORIDE [Concomitant]
     Active Substance: PROPACETAMOL HYDROCHLORIDE
     Indication: Hyperthermia
     Route: 042
     Dates: start: 20210328, end: 20210328

REACTIONS (1)
  - Pneumonitis [Fatal]

NARRATIVE: CASE EVENT DATE: 20210319
